FAERS Safety Report 23864662 (Version 2)
Quarter: 2024Q4

REPORT INFORMATION
  Report Type: Report from Study
  Country: US (occurrence: US)
  Receive Date: 20240516
  Receipt Date: 20241017
  Transmission Date: 20250115
  Serious: Yes (Other)
  Sender: ABBVIE
  Company Number: US-ABBVIE-5761193

PATIENT
  Sex: Male

DRUGS (1)
  1. SKYRIZI [Suspect]
     Active Substance: RISANKIZUMAB-RZAA
     Indication: Psoriasis
     Route: 058
     Dates: start: 20240325, end: 20240325

REACTIONS (7)
  - Aortic aneurysm [Unknown]
  - Psoriasis [Not Recovered/Not Resolved]
  - Aortic occlusion [Unknown]
  - Pulmonary mass [Unknown]
  - Calcinosis [Unknown]
  - Stress [Unknown]
  - Unevaluable event [Unknown]

NARRATIVE: CASE EVENT DATE: 20240101
